FAERS Safety Report 8530976 (Version 9)
Quarter: 2014Q3

REPORT INFORMATION
  Report Type: Spontaneous
  Country: US (occurrence: US)
  Receive Date: 20120426
  Receipt Date: 20140814
  Transmission Date: 20150326
  Serious: No
  Sender: FDA-Public Use
  Company Number: US-PFIZER INC-2012099753

PATIENT
  Age: 69 Year
  Sex: Male
  Weight: 120.18 kg

DRUGS (14)
  1. FUROSEMIDE. [Concomitant]
     Active Substance: FUROSEMIDE
     Dosage: 20 MG, UNK
  2. ALLOPURINOL. [Concomitant]
     Active Substance: ALLOPURINOL
     Dosage: 200 MG, UNK
  3. SUTENT [Suspect]
     Active Substance: SUNITINIB MALATE
     Indication: RENAL CANCER
  4. ESCITALOPRAM OXALATE. [Concomitant]
     Active Substance: ESCITALOPRAM OXALATE
     Dosage: UNK
  5. ISOSORBIDE [Concomitant]
     Active Substance: ISOSORBIDE
     Dosage: UNK
  6. POTASSIUM CHLORIDE. [Concomitant]
     Active Substance: POTASSIUM CHLORIDE
     Dosage: 10 MEQ, UNK
  7. SUTENT [Suspect]
     Active Substance: SUNITINIB MALATE
     Indication: RENAL CANCER
     Dosage: 12.5 MG, UNK
     Dates: start: 20140328
  8. FLUDROCORTISONE ACETATE. [Concomitant]
     Active Substance: FLUDROCORTISONE ACETATE
     Dosage: UNK
  9. SUTENT [Suspect]
     Active Substance: SUNITINIB MALATE
     Indication: METASTATIC RENAL CELL CARCINOMA
     Dosage: 50 MG, 1X/DAY, (CYCLE 4 WEEKS ON AND 2 WEEKS OFF)
     Route: 048
     Dates: start: 20120402, end: 20120429
  10. GABAPENTIN. [Concomitant]
     Active Substance: GABAPENTIN
     Indication: DIABETES MELLITUS
     Dosage: 300 MG, 3X/DAY
  11. OMEPRAZOLE. [Concomitant]
     Active Substance: OMEPRAZOLE
     Dosage: 10 MG, UNK
  12. ALLOPURINOL. [Concomitant]
     Active Substance: ALLOPURINOL
     Indication: GOUT
     Dosage: 100 MG, UNK
  13. PRAVASTATIN [Concomitant]
     Active Substance: PRAVASTATIN\PRAVASTATIN SODIUM
     Dosage: 40 MG, 1X/DAY
  14. ACETYLSALICYLIC ACID [Concomitant]
     Active Substance: ASPIRIN
     Dosage: 81 MG, 1X/DAY

REACTIONS (15)
  - Platelet count decreased [Unknown]
  - Corneal erosion [Recovering/Resolving]
  - Skin abrasion [Unknown]
  - Eye injury [Recovered/Resolved]
  - Respiratory disorder [Unknown]
  - Rash erythematous [Unknown]
  - Arthropod bite [Unknown]
  - Gout [Not Recovered/Not Resolved]
  - Fatigue [Unknown]
  - Impaired healing [Unknown]
  - Oropharyngeal pain [Unknown]
  - Stomatitis [Unknown]
  - Weight decreased [Unknown]
  - Dysgeusia [Unknown]
  - Oral pain [Unknown]

NARRATIVE: CASE EVENT DATE: 20120525
